FAERS Safety Report 9456421 (Version 1)
Quarter: 2013Q3

REPORT INFORMATION
  Report Type: Spontaneous
  Country: US (occurrence: US)
  Receive Date: 20130813
  Receipt Date: 20130813
  Transmission Date: 20140515
  Serious: Yes (Hospitalization)
  Sender: FDA-Public Use
  Company Number: US-PERRIGO-13US008057

PATIENT
  Age: 19 Year
  Sex: Female

DRUGS (2)
  1. IBUPROFEN 200 MG 604 [Suspect]
     Indication: BACK PAIN
     Dosage: 3 DOSES, UNK
     Route: 048
  2. NAPROXEN SODIUM 220 MG 368 [Suspect]
     Indication: BACK PAIN
     Dosage: 3 DOSES, UNK
     Route: 048

REACTIONS (4)
  - Renal failure acute [Recovered/Resolved]
  - Abdominal pain [Recovered/Resolved]
  - Flank pain [Recovered/Resolved]
  - Tubulointerstitial nephritis [Recovered/Resolved]
